FAERS Safety Report 23156815 (Version 1)
Quarter: 2023Q4

REPORT INFORMATION
  Report Type: Spontaneous
  Country: FR (occurrence: FR)
  Receive Date: 20231108
  Receipt Date: 20231108
  Transmission Date: 20240109
  Serious: Yes (Other)
  Sender: FDA-Public Use
  Company Number: FR-AFSSAPS-ST2023001400

PATIENT
  Age: 7 Year
  Sex: Female
  Weight: 19.5 kg

DRUGS (4)
  1. LEVETIRACETAM [Suspect]
     Active Substance: LEVETIRACETAM
     Indication: Seizure
     Dosage: 400 MILLIGRAM, ONCE A DAY (~200 MGX2/J  )
     Route: 048
     Dates: start: 20230709, end: 20230715
  2. CEFOTAXIME [Suspect]
     Active Substance: CEFOTAXIME SODIUM
     Indication: Encephalitis
     Dosage: 1500 MILLIGRAM, FOUR TIMES/DAY
     Route: 042
     Dates: start: 20230708, end: 20230715
  3. LEVETIRACETAM [Suspect]
     Active Substance: LEVETIRACETAM
     Indication: Seizure
     Dosage: 400 MILLIGRAM, ONCE A DAY (200 MGX2/J)
     Route: 042
     Dates: start: 20230707, end: 20230708
  4. ACYCLOVIR [Concomitant]
     Active Substance: ACYCLOVIR
     Indication: Product used for unknown indication
     Dosage: UNK
     Route: 065

REACTIONS (4)
  - Rash maculo-papular [Recovered/Resolved]
  - Pyrexia [Recovered/Resolved]
  - Face oedema [Recovered/Resolved]
  - Pruritus [Recovered/Resolved]

NARRATIVE: CASE EVENT DATE: 20230707
